FAERS Safety Report 11068506 (Version 1)
Quarter: 2015Q2

REPORT INFORMATION
  Report Type: Spontaneous
  Country: GB (occurrence: GB)
  Receive Date: 20150427
  Receipt Date: 20150427
  Transmission Date: 20150821
  Serious: Yes (Other)
  Sender: FDA-Public Use
  Company Number: GB-TEVA-556771ACC

PATIENT
  Age: 83 Year
  Sex: Male
  Weight: 74 kg

DRUGS (4)
  1. SUMATRIPTAN. [Concomitant]
     Active Substance: SUMATRIPTAN
  2. WARFARIN [Suspect]
     Active Substance: WARFARIN
  3. ROBITUSSIN DRY COUGH [Interacting]
     Active Substance: DEXTROMETHORPHAN HYDROBROMIDE
     Indication: COUGH
     Dosage: 20 ML DAILY;
     Route: 048
     Dates: start: 20150314, end: 20150320
  4. LISINOPRIL. [Concomitant]
     Active Substance: LISINOPRIL

REACTIONS (3)
  - Drug interaction [Recovering/Resolving]
  - Contusion [Recovering/Resolving]
  - International normalised ratio increased [Not Recovered/Not Resolved]

NARRATIVE: CASE EVENT DATE: 20150319
